FAERS Safety Report 4781078-2 (Version None)
Quarter: 2005Q3

REPORT INFORMATION
  Report Type: 
  Country: None (occurrence: None)
  Receive Date: 20050928
  Receipt Date: 20050919
  Transmission Date: 20060218
  Serious: Yes (Other)
  Sender: FDA-Public Use
  Company Number: FR-JNJFOC-20050204812

PATIENT
  Sex: Female

DRUGS (4)
  1. REMICADE [Suspect]
     Route: 042
  2. REMICADE [Suspect]
     Indication: CROHN'S DISEASE
     Route: 042
  3. IMUREL [Concomitant]
  4. ADALIMUMAB [Concomitant]
     Indication: CROHN'S DISEASE

REACTIONS (2)
  - ECTOPIC PREGNANCY [None]
  - PSORIASIS [None]
